FAERS Safety Report 7080374-6 (Version None)
Quarter: 2010Q4

REPORT INFORMATION
  Report Type: 
  Country: None (occurrence: None)
  Receive Date: 20101103
  Receipt Date: 20101020
  Transmission Date: 20110411
  Serious: Yes (Hospitalization)
  Sender: FDA-Public Use
  Company Number: US-ELI_LILLY_AND_COMPANY-US201006002393

PATIENT
  Sex: Female

DRUGS (15)
  1. FORTEO [Suspect]
     Indication: OSTEOPOROSIS
     Dosage: 20 UG, DAILY (1/D)
     Dates: start: 20100527
  2. ADVAIR DISKUS 100/50 [Concomitant]
     Indication: ASTHMA
     Dosage: UNK, DAILY (1/D)
  3. PRILOSEC [Concomitant]
     Dosage: 20 MG, EACH MORNING
  4. B12-VITAMIN [Concomitant]
     Dosage: UNK, DAILY (1/D)
  5. MULTI-VIT [Concomitant]
     Dosage: UNK, DAILY (1/D)
  6. ASACOL [Concomitant]
     Dosage: 400 MG, 3/D
  7. METOPROLOL [Concomitant]
     Dosage: 100 MG, 2/D
  8. LISINOPRIL HCT /01613901/ [Concomitant]
     Dosage: 20 MG/12 MG, DAILY (1/D)
  9. PREMARIN [Concomitant]
     Dosage: 0.625 MG, DAILY (1/D)
  10. CALCIUM [Concomitant]
     Dosage: 600 MG, 3/D
  11. TYLENOL (CAPLET) [Concomitant]
  12. NASACORT [Concomitant]
     Route: 055
  13. VITAMIN D [Concomitant]
     Dosage: 1000 MG, DAILY (1/D)
  14. TYLENOL PM [Concomitant]
     Dosage: UNK, AS NEEDED
  15. IRON [Concomitant]
     Dosage: UNK, DAILY (1/D)

REACTIONS (18)
  - BLOOD PRESSURE DECREASED [None]
  - BLOOD PRESSURE INCREASED [None]
  - BONE PAIN [None]
  - CHILLS [None]
  - DECREASED APPETITE [None]
  - DYSPHAGIA [None]
  - ENDOTRACHEAL INTUBATION [None]
  - FATIGUE [None]
  - FEELING COLD [None]
  - HEART RATE ABNORMAL [None]
  - HERNIA HIATUS REPAIR [None]
  - HYPERHIDROSIS [None]
  - INSOMNIA [None]
  - LIMB DISCOMFORT [None]
  - MUSCLE SPASMS [None]
  - NAUSEA [None]
  - PERIPHERAL COLDNESS [None]
  - SURGERY [None]
